FAERS Safety Report 9317980 (Version 1)
Quarter: 2013Q2

REPORT INFORMATION
  Report Type: Spontaneous
  Country: US (occurrence: US)
  Receive Date: 20130530
  Receipt Date: 20130530
  Transmission Date: 20140414
  Serious: No
  Sender: FDA-Public Use
  Company Number: US-GLAXOSMITHKLINE-A0998896A

PATIENT
  Sex: Female

DRUGS (3)
  1. VENTOLIN [Suspect]
     Indication: HYPERSENSITIVITY
     Dosage: 2PUFF PER DAY
     Route: 055
  2. ASPIRIN [Concomitant]
  3. HYDROXYUREA [Concomitant]

REACTIONS (1)
  - Therapeutic response delayed [Unknown]
